FAERS Safety Report 8846272 (Version 2)
Quarter: 2016Q4

REPORT INFORMATION
  Report Type: Spontaneous
  Country: BR (occurrence: BR)
  Receive Date: 20121018
  Receipt Date: 20161220
  Transmission Date: 20170207
  Serious: Yes (Other)
  Sender: FDA-Public Use
  Company Number: BR-AMGEN-BRASP2012066027

PATIENT
  Age: 57 Year
  Sex: Female
  Weight: 106 kg

DRUGS (2)
  1. ENBREL [Suspect]
     Active Substance: ETANERCEPT
     Indication: RHEUMATOID ARTHRITIS
     Dosage: 50 MG, ONCE WEEKLY
     Route: 058
     Dates: start: 201012, end: 201110
  2. ENBREL [Suspect]
     Active Substance: ETANERCEPT
     Indication: ARTHRITIS
     Dosage: UNK, WEEKLY
     Route: 065
     Dates: start: 2011

REACTIONS (6)
  - Diabetes mellitus [Unknown]
  - Pain [Unknown]
  - Breast cancer [Unknown]
  - Decreased immune responsiveness [Unknown]
  - Cyst [Unknown]
  - Blood pressure abnormal [Unknown]

NARRATIVE: CASE EVENT DATE: 201110
